FAERS Safety Report 5307270-6 (Version None)
Quarter: 2007Q2

REPORT INFORMATION
  Report Type: 
  Country: None (occurrence: None)
  Receive Date: 20070425
  Receipt Date: 20070420
  Transmission Date: 20071010
  Serious: Yes (Hospitalization)
  Sender: FDA-Public Use
  Company Number: ES-GLAXOSMITHKLINE-B0467831A

PATIENT
  Age: 54 Year
  Sex: Male

DRUGS (5)
  1. AVANDAMET [Suspect]
     Route: 048
     Dates: start: 20060601, end: 20070301
  2. METFORMIN HCL [Suspect]
     Dosage: 850MG PER DAY
     Route: 048
     Dates: start: 20060601, end: 20070301
  3. LANTUS [Suspect]
     Route: 030
     Dates: start: 20060901, end: 20070301
  4. AMARYL [Concomitant]
     Indication: DRUG USE FOR UNKNOWN INDICATION
     Dosage: 1MG TWICE PER DAY
     Route: 065
  5. VALS [Concomitant]
     Indication: DRUG USE FOR UNKNOWN INDICATION
     Route: 065

REACTIONS (5)
  - ATRIOVENTRICULAR BLOCK SECOND DEGREE [None]
  - CARDIAC FAILURE [None]
  - DIABETIC RETINOPATHY [None]
  - DYSPNOEA [None]
  - ORTHOPNOEA [None]
